FAERS Safety Report 8562880-8 (Version None)
Quarter: 2012Q3

REPORT INFORMATION
  Report Type: 
  Country: None (occurrence: None)
  Receive Date: 20120802
  Receipt Date: 20120719
  Transmission Date: 20120928
  Serious: No
  Sender: FDA-Public Use
  Company Number: US-AMGEN-USASP2011019424

PATIENT
  Age: 71 Year
  Sex: Male
  Weight: 94.785 kg

DRUGS (17)
  1. LOTREL [Concomitant]
     Dosage: UNK UNK, QD
  2. AZULFIDINE [Concomitant]
  3. CENTRUM SILVER                     /01292501/ [Concomitant]
     Dosage: UNK UNK, QD
  4. COQ-10 [Concomitant]
     Dosage: 200 MG, QD
  5. SULFASALAZINE [Concomitant]
     Dosage: 500 MG, BID
  6. FOLIC ACID [Concomitant]
     Dosage: 1 MG, QD
     Dates: end: 20110610
  7. TOPROL-XL [Concomitant]
     Dosage: 150 MG, QD
  8. ENBREL [Suspect]
     Indication: RHEUMATOID ARTHRITIS
     Dosage: 50 MG, QWK
     Route: 058
     Dates: start: 20110301, end: 20110610
  9. HYDROCHLOROTHIAZIDE [Concomitant]
     Dosage: 25 MG, QD
  10. PREDNISONE [Concomitant]
     Dosage: 2.5 MG, Q10MIN
  11. ESTER C                            /00008001/ [Concomitant]
  12. ALLOPURINOL [Concomitant]
     Dosage: 100 MG, QD
  13. DOXAZOSIN MESYLATE [Concomitant]
     Dosage: 4 MG, QD
  14. LORAZEPAM [Concomitant]
     Dosage: 0.5 MG, QHS
  15. POTASSIUM CHLORIDE [Concomitant]
     Dosage: UNK UNK, PRN
  16. PRESERVISION LUTEIN [Concomitant]
  17. BENAZEPRIL HYDROCHLORIDE [Concomitant]
     Dosage: 20 MG, QD

REACTIONS (7)
  - OEDEMA PERIPHERAL [None]
  - WEIGHT INCREASED [None]
  - THERAPEUTIC RESPONSE DECREASED [None]
  - PRODUCTIVE COUGH [None]
  - WEIGHT DECREASED [None]
  - ANXIETY [None]
  - INSOMNIA [None]
